FAERS Safety Report 5100240-2 (Version None)
Quarter: 2006Q3

REPORT INFORMATION
  Report Type: 
  Country: None (occurrence: None)
  Receive Date: 20060908
  Receipt Date: 20060725
  Transmission Date: 20061208
  Serious: Yes (Disabling, Other)
  Sender: FDA-Public Use
  Company Number: US-MERCK-0607USA05059

PATIENT
  Age: 6 Year
  Sex: Female
  Weight: 23 kg

DRUGS (3)
  1. SINGULAIR [Suspect]
     Indication: ASTHMA
     Route: 048
     Dates: start: 20060206, end: 20060719
  2. [THERAPY UNSPECIFIED] [Concomitant]
     Route: 065
  3. PULMICORT [Concomitant]
     Route: 065
     Dates: start: 20060407

REACTIONS (3)
  - AMNESIA [None]
  - CONVULSION [None]
  - DYSGEUSIA [None]
